FAERS Safety Report 6972695-X (Version None)
Quarter: 2010Q3

REPORT INFORMATION
  Report Type: 
  Country: None (occurrence: None)
  Receive Date: 20100909
  Receipt Date: 20100827
  Transmission Date: 20110219
  Serious: Yes (Death, Other)
  Sender: FDA-Public Use
  Company Number: MX-GENZYME-CLOF-1001141

PATIENT
  Sex: Male
  Weight: 69.5 kg

DRUGS (5)
  1. CLOLAR [Suspect]
     Indication: ACUTE LYMPHOCYTIC LEUKAEMIA
     Dosage: 40 MG/M2, QDX5
     Route: 042
     Dates: start: 20090117, end: 20090121
  2. ETOPOSIDE [Suspect]
     Indication: ACUTE LYMPHOCYTIC LEUKAEMIA
     Dosage: 175 MG, QDX5
     Route: 042
     Dates: start: 20090117, end: 20090121
  3. CYCLOPHOSPHAMIDE [Suspect]
     Indication: ACUTE LYMPHOCYTIC LEUKAEMIA
     Dosage: 700 MG, QDX5
     Route: 042
     Dates: start: 20090117, end: 20090121
  4. NEUPOGEN [Concomitant]
     Indication: BONE MARROW FAILURE
     Dosage: 300 MCG, UNK
     Route: 058
     Dates: start: 20090122
  5. DEXAMETHASONE [Concomitant]
     Indication: PROPHYLAXIS
     Dosage: 3.5 MG, TID
     Route: 042
     Dates: start: 20090117, end: 20090121

REACTIONS (4)
  - EPISTAXIS [None]
  - HAEMATEMESIS [None]
  - PULMONARY HAEMORRHAGE [None]
  - THROMBOCYTOPENIA [None]
